FAERS Safety Report 20900457 (Version 1)
Quarter: 2022Q2

REPORT INFORMATION
  Report Type: Spontaneous
  Country: CN (occurrence: None)
  Receive Date: 20220601
  Receipt Date: 20220601
  Transmission Date: 20220721
  Serious: Yes (Hospitalization)
  Sender: FDA-Public Use
  Company Number: CN-ROCHE-3109490

PATIENT
  Age: 51 Year
  Sex: Female
  Weight: 50 kg

DRUGS (3)
  1. AVASTIN [Suspect]
     Active Substance: BEVACIZUMAB
     Indication: Ovarian cancer
     Route: 041
     Dates: start: 20220513
  2. PACLITAXEL [Concomitant]
     Active Substance: PACLITAXEL
     Indication: Ovarian cancer
     Route: 041
     Dates: start: 20220513
  3. CISPLATIN [Concomitant]
     Active Substance: CISPLATIN
     Indication: Ovarian cancer
     Route: 041
     Dates: start: 20220513

REACTIONS (1)
  - Myelosuppression [Unknown]

NARRATIVE: CASE EVENT DATE: 20220515
